FAERS Safety Report 4431570-5 (Version None)
Quarter: 2004Q3

REPORT INFORMATION
  Report Type: 
  Country: None (occurrence: None)
  Receive Date: 20040824
  Receipt Date: 20040820
  Transmission Date: 20050211
  Serious: Yes (Hospitalization)
  Sender: FDA-Public Use
  Company Number: FR-MERCK-0408FRA00042

PATIENT
  Age: 57 Year
  Sex: Male
  Weight: 94 kg

DRUGS (2)
  1. HYZAAR [Suspect]
     Route: 048
     Dates: start: 19980701, end: 20030731
  2. PERINDOPRIL ERBUMINE [Suspect]
     Route: 048
     Dates: start: 20030801, end: 20040105

REACTIONS (3)
  - PRURITUS [None]
  - RASH ERYTHEMATOUS [None]
  - RASH VESICULAR [None]
